FAERS Safety Report 21929627 (Version 1)
Quarter: 2023Q1

REPORT INFORMATION
  Report Type: Spontaneous
  Country: US (occurrence: US)
  Receive Date: 20230131
  Receipt Date: 20230131
  Transmission Date: 20230417
  Serious: Yes (Other)
  Sender: FDA-Public Use
  Company Number: US-STRIDES ARCOLAB LIMITED-2022SP011969

PATIENT
  Age: 51 Year
  Sex: Female
  Weight: 72 kg

DRUGS (16)
  1. MYCOPHENOLATE MOFETIL [Suspect]
     Active Substance: MYCOPHENOLATE MOFETIL
     Indication: Insulin autoimmune syndrome
     Dosage: 500 MILLIGRAM, BID
     Route: 048
  2. MYCOPHENOLATE MOFETIL [Suspect]
     Active Substance: MYCOPHENOLATE MOFETIL
     Dosage: 1000 MILLIGRAM, BID
     Route: 065
  3. INSULIN DETEMIR [Suspect]
     Active Substance: INSULIN DETEMIR
     Indication: Insulin autoimmune syndrome
     Dosage: UNK (BASAL BOLUS SUBCUTANEOUS INSULIN REGIMEN)
     Route: 058
  4. INSULIN DETEMIR [Suspect]
     Active Substance: INSULIN DETEMIR
     Dosage: 18 UNITS, AT BED TIME
     Route: 065
  5. INSULIN DETEMIR [Suspect]
     Active Substance: INSULIN DETEMIR
     Dosage: 80 UNITS DAILY
     Route: 065
  6. INSULIN ASPART [Suspect]
     Active Substance: INSULIN ASPART
     Indication: Insulin autoimmune syndrome
     Dosage: UNK (BASAL BOLUS SUBCUTANEOUS INSULIN REGIMEN)
     Route: 058
  7. INSULIN ASPART [Suspect]
     Active Substance: INSULIN ASPART
     Dosage: 8 UNITS (WITH EACH MEAL (0.58 UNITS/KG)
     Route: 065
  8. INSULIN ASPART [Suspect]
     Active Substance: INSULIN ASPART
     Dosage: 60 UNITS (UP TO FIVE TIMES DAILY)
     Route: 065
  9. INSULIN ASPART [Suspect]
     Active Substance: INSULIN ASPART
     Dosage: 0.85 UNITS PER HOUR (HYPOGLYCEMIA OCCURRED EVEN WITH ASPART INSULIN AT A BASAL RATE OF 0.85 UNIT/H)
     Route: 065
  10. NPH INSULIN [Suspect]
     Active Substance: INSULIN BEEF
     Indication: Insulin autoimmune syndrome
     Dosage: UNK
     Route: 058
  11. INSULIN NOS [Suspect]
     Active Substance: INSULIN NOS
     Indication: Insulin autoimmune syndrome
     Dosage: UNK (LOW DOSE) (DKA PROTOCOL)
     Route: 042
  12. INSULIN NOS [Suspect]
     Active Substance: INSULIN NOS
     Dosage: 225 UNITS PER DAY
     Route: 065
  13. INSULIN NOS [Suspect]
     Active Substance: INSULIN NOS
     Dosage: UNK (REQUIRED 50% MORE)
     Route: 042
  14. INSULIN NOS [Suspect]
     Active Substance: INSULIN NOS
     Dosage: 400 UNITS PER DAY
     Route: 058
  15. INSULIN NOS [Suspect]
     Active Substance: INSULIN NOS
     Dosage: UNK (CONTINUOUS SUBCUTANEOUS INSULIN INFUSION )
     Route: 058
  16. INSULIN NOS [Suspect]
     Active Substance: INSULIN NOS
     Dosage: UNK (LESS THAN 40 UNITS A DAY (0.55 UNITS/KG))
     Route: 065

REACTIONS (2)
  - Therapy partial responder [Unknown]
  - Off label use [Unknown]
